FAERS Safety Report 22394409 (Version 2)
Quarter: 2023Q2

REPORT INFORMATION
  Report Type: Report from Study
  Country: AU (occurrence: AU)
  Receive Date: 20230601
  Receipt Date: 20230622
  Transmission Date: 20230722
  Serious: Yes (Hospitalization)
  Sender: FDA-Public Use
  Company Number: AU-Merck Healthcare KGaA-9399139

PATIENT
  Age: 33 Year
  Sex: Female
  Weight: 74 kg

DRUGS (4)
  1. MAVENCLAD [Suspect]
     Active Substance: CLADRIBINE
     Indication: Relapsing-remitting multiple sclerosis
     Dosage: YEAR 1 WEEK 1
     Route: 048
     Dates: start: 20191017, end: 20191021
  2. MAVENCLAD [Suspect]
     Active Substance: CLADRIBINE
     Dosage: YEAR 1 WEEK 5
     Route: 048
     Dates: start: 20191114, end: 20191118
  3. MAVENCLAD [Suspect]
     Active Substance: CLADRIBINE
     Dosage: YEAR 2 WEEK 1
     Route: 048
     Dates: start: 20201022, end: 20201026
  4. MAVENCLAD [Suspect]
     Active Substance: CLADRIBINE
     Dosage: YEAR 2 WEEK 5
     Route: 048
     Dates: start: 20201119, end: 20201123

REACTIONS (2)
  - Pneumonia [Recovered/Resolved]
  - Neutropenia [Recovered/Resolved]

NARRATIVE: CASE EVENT DATE: 20221013
